FAERS Safety Report 16083214 (Version 2)
Quarter: 2020Q1

REPORT INFORMATION
  Report Type: Report from Study
  Country: US (occurrence: US)
  Receive Date: 20190318
  Receipt Date: 20200323
  Transmission Date: 20200409
  Serious: Yes (Other)
  Sender: FDA-Public Use
  Company Number: US-ROCHE-2278386

PATIENT

DRUGS (2)
  1. PEMBROLIZUMAB. [Suspect]
     Active Substance: PEMBROLIZUMAB
     Indication: METASTATIC RENAL CELL CARCINOMA
     Route: 042
  2. BEVACIZUMAB. [Suspect]
     Active Substance: BEVACIZUMAB
     Indication: METASTATIC RENAL CELL CARCINOMA
     Dosage: 10 OR 15 MG/KG DOSE
     Route: 042

REACTIONS (46)
  - Immune-mediated hepatitis [Unknown]
  - Chronic gastritis [Unknown]
  - Leukocytosis [Unknown]
  - Syncope [Unknown]
  - Dental caries [Unknown]
  - Hyponatraemia [Unknown]
  - Pain [Unknown]
  - Rash [Unknown]
  - Depression [Unknown]
  - Cataract [Unknown]
  - Renal failure [Unknown]
  - Nausea [Unknown]
  - Hyperglycaemia [Unknown]
  - Pneumonitis [Unknown]
  - Skin toxicity [Unknown]
  - Diarrhoea [Unknown]
  - Duodenal ulcer [Unknown]
  - Myocardial infarction [Unknown]
  - Amylase increased [Unknown]
  - Angina pectoris [Unknown]
  - Colitis [Unknown]
  - Hypertension [Unknown]
  - Asthenia [Unknown]
  - Headache [Unknown]
  - Seizure [Unknown]
  - Pancreatitis [Unknown]
  - Osteonecrosis of jaw [Unknown]
  - Lichen planus [Unknown]
  - Embolic stroke [Unknown]
  - Muscular weakness [Unknown]
  - Proteinuria [Unknown]
  - Vomiting [Unknown]
  - Hypothyroidism [Unknown]
  - Haematuria [Unknown]
  - Cardiac failure [Unknown]
  - Adrenal insufficiency [Unknown]
  - Arthralgia [Unknown]
  - Anaemia [Unknown]
  - Embolism [Unknown]
  - Pleural effusion [Unknown]
  - Dehydration [Unknown]
  - Stomatitis [Unknown]
  - Influenza like illness [Unknown]
  - Blood alkaline phosphatase increased [Unknown]
  - Hypercalcaemia [Unknown]
  - Infection [Unknown]
